FAERS Safety Report 6889605-6 (Version None)
Quarter: 2010Q3

REPORT INFORMATION
  Report Type: 
  Country: None (occurrence: None)
  Receive Date: 20100730
  Receipt Date: 20080501
  Transmission Date: 20110219
  Serious: No
  Sender: FDA-Public Use
  Company Number: US-PFIZER INC-2008024685

PATIENT
  Age: 77 Year
  Sex: Female

DRUGS (2)
  1. LIPITOR [Suspect]
     Indication: BLOOD CHOLESTEROL INCREASED
     Dates: start: 20030101
  2. ACETYLSALICYLIC ACID SRT [Concomitant]

REACTIONS (2)
  - MOUTH ULCERATION [None]
  - SKIN ODOUR ABNORMAL [None]
